FAERS Safety Report 22181132 (Version 2)
Quarter: 2023Q2

REPORT INFORMATION
  Report Type: Spontaneous
  Country: US (occurrence: US)
  Receive Date: 20230406
  Receipt Date: 20230413
  Transmission Date: 20230721
  Serious: No
  Sender: FDA-Public Use
  Company Number: US-BRISTOL-MYERS SQUIBB COMPANY-2023-048479

PATIENT
  Age: 55 Year
  Sex: Male

DRUGS (8)
  1. POMALYST [Suspect]
     Active Substance: POMALIDOMIDE
     Indication: Plasma cell myeloma
     Dosage: FREQUENCY: DAILY
     Route: 048
     Dates: start: 20230105
  2. XARELTO [Concomitant]
     Active Substance: RIVAROXABAN
     Indication: Plasma cell myeloma
  3. ACYCLOVIR [Concomitant]
     Active Substance: ACYCLOVIR
     Indication: Plasma cell myeloma
  4. DIAZEPAM [Concomitant]
     Active Substance: DIAZEPAM
     Indication: Plasma cell myeloma
  5. DEXAMETHASONE [Concomitant]
     Active Substance: DEXAMETHASONE
     Indication: Plasma cell myeloma
  6. LISINOPRIL [Concomitant]
     Active Substance: LISINOPRIL
     Indication: Plasma cell myeloma
  7. NEXIUM [Concomitant]
     Active Substance: ESOMEPRAZOLE MAGNESIUM
     Indication: Plasma cell myeloma
  8. ZOLPIDEM [Concomitant]
     Active Substance: ZOLPIDEM TARTRATE
     Indication: Plasma cell myeloma

REACTIONS (2)
  - Upper respiratory tract infection [Unknown]
  - Off label use [Unknown]

NARRATIVE: CASE EVENT DATE: 20230404
